FAERS Safety Report 21136877 (Version 1)
Quarter: 2022Q3

REPORT INFORMATION
  Report Type: Spontaneous
  Country: US (occurrence: None)
  Receive Date: 20220726
  Receipt Date: 20220726
  Transmission Date: 20221026
  Serious: Yes (Other)
  Sender: FDA-Public Use
  Company Number: None

PATIENT
  Age: 28 Year
  Sex: Female
  Weight: 90 kg

DRUGS (2)
  1. METHADONE [Suspect]
     Active Substance: METHADONE HYDROCHLORIDE
     Indication: Drug dependence
     Dosage: OTHER QUANTITY : 1 DRINK;?FREQUENCY : DAILY;?
     Route: 048
  2. Nexplonan [Concomitant]

REACTIONS (3)
  - Dental caries [None]
  - Tooth loss [None]
  - Tooth fracture [None]

NARRATIVE: CASE EVENT DATE: 20210101
